FAERS Safety Report 5017737-6 (Version None)
Quarter: 2006Q2

REPORT INFORMATION
  Report Type: 
  Country: None (occurrence: None)
  Receive Date: 20060605
  Receipt Date: 20060403
  Transmission Date: 20061013
  Serious: Yes (Hospitalization)
  Sender: FDA-Public Use
  Company Number: PHHO2006FR05415

PATIENT
  Age: 10 Year
  Sex: Male
  Weight: 25.8 kg

DRUGS (1)
  1. EXJADE [Suspect]
     Indication: BLOOD IRON INCREASED
     Dosage: 30 MG/KG, QD
     Route: 048
     Dates: start: 20040128

REACTIONS (1)
  - HAEMATURIA [None]
